FAERS Safety Report 17929694 (Version 1)
Quarter: 2020Q2

REPORT INFORMATION
  Report Type: Spontaneous
  Country: US (occurrence: US)
  Receive Date: 20200623
  Receipt Date: 20200623
  Transmission Date: 20200714
  Serious: No
  Sender: FDA-Public Use
  Company Number: None

PATIENT
  Age: 66 Year
  Sex: Female
  Weight: 63 kg

DRUGS (5)
  1. VITAMIN B COMPLEX [Concomitant]
     Active Substance: CYANOCOBALAMIN\DEXPANTHENOL\NIACINAMIDE\PYRIDOXINE HYDROCHLORIDE\RIBOFLAVIN 5^-PHOSPHATE SODIUM\THIAMINE HYDROCHLORIDE\VITAMIN B COMPLEX
  2. LEVOTHYROXINE. [Concomitant]
     Active Substance: LEVOTHYROXINE
  3. LYNPARZA [Suspect]
     Active Substance: OLAPARIB
     Indication: OVARIAN CANCER
     Dosage: ?          QUANTITY:2 TABLET(S);?
     Route: 048
     Dates: start: 20200119
  4. MAGNESIUM [Concomitant]
     Active Substance: MAGNESIUM
  5. ESOMEPRAZOLE. [Concomitant]
     Active Substance: ESOMEPRAZOLE MAGNESIUM

REACTIONS (4)
  - Arthralgia [None]
  - Neuropathy peripheral [None]
  - Condition aggravated [None]
  - Myalgia [None]

NARRATIVE: CASE EVENT DATE: 20200623
